FAERS Safety Report 8571371-X (Version None)
Quarter: 2012Q3

REPORT INFORMATION
  Report Type: 
  Country: None (occurrence: None)
  Receive Date: 20120806
  Receipt Date: 20120725
  Transmission Date: 20120928
  Serious: Yes (Hospitalization)
  Sender: FDA-Public Use
  Company Number: JP-ELI_LILLY_AND_COMPANY-JP201207007817

PATIENT
  Age: 85 Year
  Sex: Female

DRUGS (12)
  1. MEVAN                              /00880402/ [Concomitant]
     Indication: DYSLIPIDAEMIA
     Dosage: UNK
     Route: 048
  2. GASMOTIN [Concomitant]
     Dosage: UNK
     Route: 048
  3. DIAZEPAM [Concomitant]
     Indication: DEMENTIA
     Dosage: UNK
     Route: 048
  4. PRAMIPEXOLE DIHYDROCHLORIDE [Concomitant]
     Indication: PARKINSON'S DISEASE
     Dosage: UNK
     Route: 048
  5. MADOPAR [Concomitant]
     Indication: PARKINSON'S DISEASE
     Dosage: UNK
     Route: 048
  6. ARICEPT [Concomitant]
     Indication: DEMENTIA
     Dosage: UNK
     Route: 048
  7. OMEPRAZOLE [Concomitant]
     Dosage: UNK
     Route: 048
  8. URSO 250 [Concomitant]
     Indication: LIVER DISORDER
     Dosage: UNK
     Route: 048
  9. FORTEO [Suspect]
     Indication: OSTEOPOROSIS
     Dosage: 20 UG, QD
     Route: 058
     Dates: start: 20120316, end: 20120720
  10. GOSHAJINKIGAN [Concomitant]
     Indication: HYPERTONIC BLADDER
     Dosage: UNK
     Route: 048
  11. ALOSENN                            /00476901/ [Concomitant]
     Indication: CONSTIPATION
     Dosage: UNK
     Route: 048
  12. BUP-4 [Concomitant]
     Indication: HYPERTONIC BLADDER
     Dosage: UNK
     Route: 048

REACTIONS (2)
  - PALPITATIONS [None]
  - AGGRESSION [None]
